FAERS Safety Report 25008105 (Version 1)
Quarter: 2025Q1

REPORT INFORMATION
  Report Type: Report from Study
  Country: US (occurrence: US)
  Receive Date: 20250225
  Receipt Date: 20250225
  Transmission Date: 20250409
  Serious: Yes (Other)
  Sender: ALEXION PHARMACEUTICALS
  Company Number: US-AstraZeneca-CH-00810094A

PATIENT

DRUGS (2)
  1. DAPAGLIFLOZIN [Suspect]
     Active Substance: DAPAGLIFLOZIN
     Route: 065
  2. TICAGRELOR [Suspect]
     Active Substance: TICAGRELOR
     Route: 065

REACTIONS (5)
  - Myocardial infarction [Unknown]
  - Anaplastic large cell lymphoma T- and null-cell types [Unknown]
  - Mitral valve prolapse [Unknown]
  - Graft versus host disease [Unknown]
  - Cardiomegaly [Unknown]
